FAERS Safety Report 4936350-X (Version None)
Quarter: 2006Q1

REPORT INFORMATION
  Report Type: 
  Country: None (occurrence: None)
  Receive Date: 20060127
  Receipt Date: 20051222
  Transmission Date: 20060701
  Serious: Yes (Other)
  Sender: FDA-Public Use
  Company Number: 2005148631

PATIENT
  Age: 68 Year
  Sex: Male

DRUGS (15)
  1. LYRICA [Suspect]
     Indication: NEURALGIA
     Dosage: 300 MG (150 MG, 2 IN 1 D)
     Dates: start: 20051004, end: 20051020
  2. LYRICA [Suspect]
     Indication: RESTLESS LEGS SYNDROME
     Dosage: 300 MG (150 MG, 2 IN 1 D)
     Dates: start: 20051004, end: 20051020
  3. REQUIP [Concomitant]
  4. PROZAC [Concomitant]
  5. DULCOLAX [Concomitant]
  6. COREG [Concomitant]
  7. ASPIRIN [Concomitant]
  8. PREDNISONE TAB [Concomitant]
  9. POTASSIUM (POTASSIUM) [Concomitant]
  10. PROTONIX [Concomitant]
  11. MONTELUKAST (MONTELUKAST) [Concomitant]
  12. LASIX [Concomitant]
  13. ZAROXOLYN [Concomitant]
  14. MAGNESIUM OXIDE (MAGNESIUM OXIDE) [Concomitant]
  15. TEMAZEPAM [Concomitant]

REACTIONS (7)
  - DIZZINESS [None]
  - DYSPHEMIA [None]
  - GAIT DISTURBANCE [None]
  - HEADACHE [None]
  - MEMORY IMPAIRMENT [None]
  - PRESSURE OF SPEECH [None]
  - VISION BLURRED [None]
